FAERS Safety Report 9938475 (Version 2)
Quarter: 2014Q1

REPORT INFORMATION
  Report Type: Report from Study
  Country: US (occurrence: US)
  Receive Date: 20140303
  Receipt Date: 20140303
  Transmission Date: 20141002
  Serious: No
  Sender: FDA-Public Use
  Company Number: US-ABBVIE-12P-163-1017195-00

PATIENT
  Age: 31 Year
  Sex: Female

DRUGS (6)
  1. HUMIRA [Suspect]
     Indication: CROHN^S DISEASE
     Dates: start: 201210
  2. HUMIRA [Suspect]
     Dates: start: 20121219
  3. SINGULAIR [Concomitant]
     Indication: HYPERSENSITIVITY
  4. CALCIUM [Concomitant]
     Indication: MINERAL SUPPLEMENTATION
  5. IRON [Concomitant]
     Indication: ANAEMIA
  6. SUPER B COMPLEX [Concomitant]
     Indication: VITAMIN SUPPLEMENTATION

REACTIONS (2)
  - Nasopharyngitis [Not Recovered/Not Resolved]
  - Crohn^s disease [Recovered/Resolved]
